FAERS Safety Report 6471843-8 (Version None)
Quarter: 2009Q4

REPORT INFORMATION
  Report Type: 
  Country: None (occurrence: None)
  Receive Date: 20091203
  Receipt Date: 20080724
  Transmission Date: 20100525
  Serious: Yes (Hospitalization)
  Sender: FDA-Public Use
  Company Number: GB-ELI_LILLY_AND_COMPANY-GB200803000531

PATIENT
  Sex: Female

DRUGS (7)
  1. ZYPREXA [Suspect]
     Indication: MAJOR DEPRESSION
     Dosage: 5 MG, UNK
     Dates: start: 20030201
  2. ZYPREXA [Suspect]
     Dosage: 15 MG, UNK
     Dates: end: 20070101
  3. VENLAFAXINE [Concomitant]
     Dosage: 150 MG, UNK
     Route: 048
     Dates: start: 20040401
  4. VENLAFAXINE [Concomitant]
     Dosage: 225 MG, DAILY (1/D)
     Dates: start: 20040401
  5. VENLAFAXINE [Concomitant]
     Dosage: 75 MG, EACH MORNING
  6. VENLAFAXINE [Concomitant]
     Dosage: 150 MG, EACH EVENING
  7. ASPIRIN [Concomitant]
     Dosage: 75 MG, DAILY (1/D)

REACTIONS (6)
  - CEREBROVASCULAR ACCIDENT [None]
  - ESSENTIAL THROMBOCYTHAEMIA [None]
  - OEDEMA PERIPHERAL [None]
  - SUICIDAL IDEATION [None]
  - TRANSIENT ISCHAEMIC ATTACK [None]
  - WEIGHT INCREASED [None]
